FAERS Safety Report 4732495-8 (Version None)
Quarter: 2005Q3

REPORT INFORMATION
  Report Type: 
  Country: None (occurrence: None)
  Receive Date: 20050801
  Receipt Date: 20050801
  Transmission Date: 20060218
  Serious: No
  Sender: FDA-Public Use
  Company Number: None

PATIENT
  Age: 59 Year
  Sex: Male
  Weight: 88.5 kg

DRUGS (3)
  1. LABETOLOL [Suspect]
     Indication: HYPERTENSION
     Dosage: 200 MG PO BID
     Route: 048
     Dates: start: 20050426, end: 20050428
  2. VERAPAMIL [Suspect]
     Indication: ATRIAL FIBRILLATION
     Dosage: 240 MG PO BID
     Route: 048
  3. VERAPAMIL [Suspect]
     Indication: HYPERTENSION
     Dosage: 240 MG PO BID
     Route: 048

REACTIONS (11)
  - ATRIOVENTRICULAR BLOCK [None]
  - BLOOD PRESSURE INADEQUATELY CONTROLLED [None]
  - BLOOD PRESSURE INCREASED [None]
  - CARDIAC ARREST [None]
  - CARDIAC FAILURE CONGESTIVE [None]
  - CEREBROVASCULAR ACCIDENT [None]
  - CONDITION AGGRAVATED [None]
  - DRUG ABUSER [None]
  - RENAL ARTERY STENOSIS [None]
  - RENAL FAILURE [None]
  - TREATMENT NONCOMPLIANCE [None]
